FAERS Safety Report 9474741 (Version 5)
Quarter: 2013Q3

REPORT INFORMATION
  Report Type: Spontaneous
  Country: FR (occurrence: FR)
  Receive Date: 20130823
  Receipt Date: 20130917
  Transmission Date: 20140515
  Serious: Yes (Life-Threatening, Other)
  Sender: FDA-Public Use
  Company Number: FR-PFIZER INC-2013239638

PATIENT
  Age: 35 Year
  Sex: Male

DRUGS (27)
  1. ARACYTINE [Suspect]
     Dosage: 2000 MG/M2, UNK
     Route: 042
     Dates: start: 20130723, end: 20130723
  2. ARACYTINE [Suspect]
     Dosage: 2000 MG/M2, 2X/DAY
     Route: 042
     Dates: start: 20130724, end: 20130724
  3. BUSILVEX [Suspect]
     Indication: TRANSPLANT
     Dosage: 0.8 MG/KG, EVERY 6 HOURS
     Route: 042
     Dates: start: 20130720, end: 20130723
  4. ALKERAN [Suspect]
     Dosage: 140 MG/M2, UNK
     Route: 042
     Dates: start: 20130725, end: 20130725
  5. GARDENALE [Suspect]
     Indication: PRODUCT USED FOR UNKNOWN INDICATION
     Dosage: HALF OF A VIAL PER LITER OF BUSULFAN
     Route: 042
  6. GARDENALE [Suspect]
     Dosage: 100 MG, 4X/DAY
     Route: 042
     Dates: start: 20130721, end: 20130722
  7. ZOPHREN [Concomitant]
     Dosage: 1 DF, UNK
     Route: 042
     Dates: start: 20130720
  8. ZOPHREN [Concomitant]
     Dosage: 8 MG, 2X/DAY
     Route: 048
     Dates: start: 20130720
  9. VANCOMYCIN MYLAN [Concomitant]
     Indication: PYREXIA
     Dosage: 1 G, UNK
     Route: 042
     Dates: start: 20130725, end: 20130725
  10. GENTAMICIN [Concomitant]
     Dosage: 2 DF, 3X/DAY
  11. COLISTIN [Concomitant]
     Dosage: 2 DF, 3X/DAY
  12. HEPARIN [Concomitant]
     Dosage: 94 MG, DAILY
  13. TRIFLUCAN [Concomitant]
     Dosage: 200 MG, DAILY
  14. TAZOCILLINE [Concomitant]
     Dosage: 4 G, 4X/DAY
     Dates: start: 20130724, end: 20130725
  15. GELOX [Concomitant]
     Dosage: 2 DF, DAILY
  16. MYCOSTATINE [Concomitant]
     Dosage: 2 BOTTLES DAILY
  17. EMEND [Concomitant]
     Dosage: 125 MG, UNK
     Dates: start: 20130720, end: 20130720
  18. EMEND [Concomitant]
     Dosage: 80 MG, DAILY
  19. MOPRAL [Concomitant]
     Dosage: 20 MG, DAILY
  20. TOBRADEX [Concomitant]
     Dosage: 1 DROP IN THE EYE BEFORE CYTARABIN
  21. IDARAC [Concomitant]
     Dosage: 2 DF, 3X/DAY AS NEEDED
     Route: 048
  22. PENTACARINAT [Concomitant]
     Dosage: 1 DF, UNK
     Dates: start: 20130721, end: 20130721
  23. ZOVIRAX [Concomitant]
     Dosage: 250 MG, 3X/DAY
  24. AMIKLIN [Concomitant]
     Dosage: 1400 MG, DAILY
     Dates: start: 20130724, end: 20130725
  25. PERFALGAN [Concomitant]
     Dosage: 500 MG, UNK
     Route: 048
  26. PERFALGAN [Concomitant]
     Dosage: 500 MG, FIVE TIMES
     Route: 048
     Dates: start: 20130724, end: 20130724
  27. PRIMPERAN [Concomitant]
     Dosage: 1 DF, 4X/DAY AS NEEDED
     Route: 048

REACTIONS (9)
  - Hepatitis acute [Recovered/Resolved]
  - Bone marrow failure [Recovered/Resolved]
  - Renal failure acute [Unknown]
  - Shock [Unknown]
  - Hypotension [Recovered/Resolved]
  - Pyrexia [Recovered/Resolved]
  - Tachycardia [Recovered/Resolved]
  - Pain [Unknown]
  - Incorrect dose administered [Unknown]
